FAERS Safety Report 10883968 (Version 9)
Quarter: 2018Q1

REPORT INFORMATION
  Report Type: Report from Study
  Country: BR (occurrence: BR)
  Receive Date: 20150304
  Receipt Date: 20180308
  Transmission Date: 20180508
  Serious: Yes (Hospitalization, Other)
  Sender: FDA-Public Use
  Company Number: BR-ROCHE-1547497

PATIENT
  Age: 53 Year
  Sex: Female
  Weight: 85 kg

DRUGS (12)
  1. SPIRIVA [Concomitant]
     Active Substance: TIOTROPIUM BROMIDE MONOHYDRATE
     Indication: ASTHMA
     Dosage: 2.5 UG, QD, (2 ASPIRATIONS)
     Route: 055
     Dates: start: 201508
  2. DUOVENT N [Concomitant]
     Active Substance: FENOTEROL HYDROBROMIDE\IPRATROPIUM BROMIDE
     Indication: ASTHMA
     Dosage: 3 ASPIRATIONS?STARTED 20 YEARS AGO
     Route: 055
  3. XOLAIR [Suspect]
     Active Substance: OMALIZUMAB
     Dosage: 150 MG, 1 AMPOLE AND HALF, TWICE PER MONTH
     Route: 058
     Dates: start: 201107, end: 201408
  4. INFLUENZA VIRUS VACCINE [Suspect]
     Active Substance: INFLUENZA VIRUS VACCINE
     Indication: PRODUCT USED FOR UNKNOWN INDICATION
     Route: 065
  5. FLIXONASE [Concomitant]
     Active Substance: FLUTICASONE PROPIONATE
     Indication: PROPHYLAXIS
     Dosage: (2 SPRAYS A DAY IN EACH NOSTRIL)
     Route: 045
     Dates: start: 201508
  6. METICORTEN [Concomitant]
     Active Substance: PREDNISONE
     Indication: DYSPNOEA
     Dosage: 20 MG, QD,(2 TABLETS IF EPISODE)
     Route: 048
  7. XOLAIR [Suspect]
     Active Substance: OMALIZUMAB
     Indication: ASTHMA
     Dosage: 1.5 AMPULE
     Route: 058
     Dates: start: 20090331
  8. XOLAIR [Suspect]
     Active Substance: OMALIZUMAB
     Route: 058
  9. SERETIDE [Concomitant]
     Active Substance: FLUTICASONE PROPIONATE\SALMETEROL XINAFOATE
     Indication: ASTHMA
     Dosage: 500/50 UG
     Route: 055
  10. SYMBICORT [Concomitant]
     Active Substance: BUDESONIDE\FORMOTEROL FUMARATE DIHYDRATE
     Indication: ASTHMA
     Dosage: ASPIRATIONS
     Route: 055
     Dates: start: 2009
  11. PANTOPRAZOL [Concomitant]
     Active Substance: PANTOPRAZOLE SODIUM
     Indication: PROPHYLAXIS
     Dosage: 20 MG, BID
     Route: 048
  12. CROMOLERG [Concomitant]
     Indication: CATARACT
     Dosage: 1 DRP, QD (IN EACH EYE),4%
     Route: 047

REACTIONS (40)
  - Fibromyalgia [Unknown]
  - Respiratory tract infection [Unknown]
  - Throat tightness [Recovering/Resolving]
  - Fatigue [Not Recovered/Not Resolved]
  - Decreased immune responsiveness [Unknown]
  - Liver disorder [Unknown]
  - Bronchospasm [Recovering/Resolving]
  - Oropharyngeal pain [Unknown]
  - Gastric disorder [Unknown]
  - Gastric dilatation [Unknown]
  - Oral discomfort [Unknown]
  - Infection susceptibility increased [Unknown]
  - Lipids abnormal [Unknown]
  - Dysphonia [Unknown]
  - Dyspnoea [Recovering/Resolving]
  - Feeding disorder [Unknown]
  - Cough [Unknown]
  - Respiratory failure [Unknown]
  - White blood cell count increased [Recovering/Resolving]
  - Depressed mood [Unknown]
  - Obesity [Unknown]
  - Rotavirus infection [Unknown]
  - Hypertension [Recovering/Resolving]
  - Dermatitis allergic [Unknown]
  - Asthmatic crisis [Unknown]
  - Pneumonia [Recovering/Resolving]
  - Pyrexia [Unknown]
  - Wheezing [Unknown]
  - Bone density decreased [Unknown]
  - Asthma [Recovering/Resolving]
  - Influenza [Unknown]
  - Blood potassium decreased [Recovering/Resolving]
  - Weight increased [Not Recovered/Not Resolved]
  - Osteoarthritis [Unknown]
  - Pharyngitis [Unknown]
  - Aphasia [Unknown]
  - Secretion discharge [Recovering/Resolving]
  - Productive cough [Recovering/Resolving]
  - Blood glucose increased [Unknown]
  - Sneezing [Unknown]

NARRATIVE: CASE EVENT DATE: 201508
